FAERS Safety Report 5754223-X (Version None)
Quarter: 2008Q2

REPORT INFORMATION
  Report Type: 
  Country: None (occurrence: None)
  Receive Date: 20080530
  Receipt Date: 20080526
  Transmission Date: 20081010
  Serious: Yes (Hospitalization)
  Sender: FDA-Public Use
  Company Number: FR-JNJFOC-20080207074

PATIENT
  Sex: Male

DRUGS (2)
  1. RISPERDAL [Suspect]
     Indication: CHILDHOOD PSYCHOSIS
     Route: 048
  2. FUMAFER [Concomitant]
     Indication: ANAEMIA
     Dosage: 1-1-1

REACTIONS (4)
  - ANAEMIA [None]
  - DUODENITIS [None]
  - GASTRITIS [None]
  - LARGE INTESTINAL HAEMORRHAGE [None]
